FAERS Safety Report 5477108-5 (Version None)
Quarter: 2007Q4

REPORT INFORMATION
  Report Type: 
  Country: None (occurrence: None)
  Receive Date: 20071004
  Receipt Date: 20070921
  Transmission Date: 20080405
  Serious: No
  Sender: FDA-Public Use
  Company Number: JP-ELI_LILLY_AND_COMPANY-JP200710000009

PATIENT
  Age: 30 Year
  Sex: Female

DRUGS (3)
  1. ZYPREXA [Suspect]
     Indication: SCHIZOPHRENIA
     Dosage: 20 MG, DAILY (1/D)
     Route: 048
  2. ROHYPNOL [Concomitant]
     Indication: INSOMNIA
     Dosage: UNK, UNK
     Route: 048
  3. HALCION [Concomitant]
     Indication: INSOMNIA
     Dosage: UNK, UNK
     Route: 048

REACTIONS (1)
  - VENOUS THROMBOSIS LIMB [None]
